FAERS Safety Report 21348214 (Version 1)
Quarter: 2022Q3

REPORT INFORMATION
  Report Type: Spontaneous
  Country: RU (occurrence: RU)
  Receive Date: 20220919
  Receipt Date: 20220919
  Transmission Date: 20221027
  Serious: Yes (Death, Other)
  Sender: FDA-Public Use
  Company Number: RU-AMGEN-RUSSP2022157528

PATIENT

DRUGS (13)
  1. BLINATUMOMAB [Suspect]
     Active Substance: BLINATUMOMAB
     Indication: Acute lymphocytic leukaemia recurrent
     Dosage: 5-15 MICROGRAMS/M2 PER DAY
     Route: 065
  2. BUSULFAN [Concomitant]
     Active Substance: BUSULFAN
     Dosage: 3 MILLIGRAM/KILOGRAM
  3. CYCLOPHOSPHAMIDE [Concomitant]
     Active Substance: CYCLOPHOSPHAMIDE
     Dosage: 100 MILLIGRAM/KILOGRAM
  4. CYCLOPHOSPHAMIDE [Concomitant]
     Active Substance: CYCLOPHOSPHAMIDE
     Dosage: 50 MILLIGRAM/KILOGRAM
  5. LOMUSTINE [Concomitant]
     Active Substance: LOMUSTINE
     Dosage: 120 MILLIGRAM/M2
  6. CYTARABINE [Concomitant]
     Active Substance: CYTARABINE
     Dosage: 6000 MILLIGRAM/M2
  7. TREOSULFAN [Concomitant]
     Active Substance: TREOSULFAN
  8. FLUDARABINE PHOSPHATE [Concomitant]
     Active Substance: FLUDARABINE PHOSPHATE
     Dosage: 150 MILLIGRAM/M2
  9. THIOTEPA [Concomitant]
     Active Substance: THIOTEPA
  10. MELPHALAN [Concomitant]
     Active Substance: MELPHALAN
     Dosage: 140 MILLIGRAM/M2
  11. RITUXIMAB [Concomitant]
     Active Substance: RITUXIMAB
  12. TOCILIZUMAB [Concomitant]
     Active Substance: TOCILIZUMAB
  13. ABATACEPT [Concomitant]
     Active Substance: ABATACEPT

REACTIONS (16)
  - Cytomegalovirus urinary tract infection [Unknown]
  - Enterocolitis infectious [Unknown]
  - Clostridial infection [Unknown]
  - Cytomegalovirus colitis [Unknown]
  - Serratia infection [Unknown]
  - Cytomegalovirus viraemia [Unknown]
  - Pneumonia cytomegaloviral [Unknown]
  - Seizure [Unknown]
  - Acute graft versus host disease in skin [Unknown]
  - Graft versus host disease in gastrointestinal tract [Unknown]
  - Graft versus host disease in liver [Unknown]
  - Graft versus host disease oral [Unknown]
  - Chronic graft versus host disease [Unknown]
  - Leukaemic infiltration extramedullary [Unknown]
  - Graft versus host disease in eye [Unknown]
  - Acute lymphocytic leukaemia recurrent [Fatal]
